FAERS Safety Report 16737461 (Version 2)
Quarter: 2020Q2

REPORT INFORMATION
  Report Type: Report from Study
  Country: FI (occurrence: FI)
  Receive Date: 20190823
  Receipt Date: 20200521
  Transmission Date: 20200713
  Serious: Yes (Death)
  Sender: FDA-Public Use
  Company Number: FI-PFIZER INC-2019359630

PATIENT

DRUGS (18)
  1. VINCRISTINE SULFATE. [Suspect]
     Active Substance: VINCRISTINE SULFATE
     Indication: DIFFUSE LARGE B-CELL LYMPHOMA
     Dosage: UNK, EVERY 2 WEEKS FOR 2 COURCES
  2. RITUXIMAB. [Suspect]
     Active Substance: RITUXIMAB
     Dosage: UNK, CYCLIC (FOUR COURSES)
  3. CYTARABINE. [Suspect]
     Active Substance: CYTARABINE
     Indication: DIFFUSE LARGE B-CELL LYMPHOMA
     Dosage: UNK, CYCLIC (ONE COURSE,HIGH DOSE)
  4. ETOPOSIDE. [Suspect]
     Active Substance: ETOPOSIDE
     Indication: DIFFUSE LARGE B-CELL LYMPHOMA
     Dosage: UNK, CYCLIC (FOUR COURSES)
  5. RITUXIMAB. [Suspect]
     Active Substance: RITUXIMAB
     Dosage: PREPHASE
  6. CYTARABINE. [Suspect]
     Active Substance: CYTARABINE
     Indication: DIFFUSE LARGE B-CELL LYMPHOMA
     Dosage: UNK, CYCLIC (AT COURSES 1, 3 AND 5) (LIPOSOMAL)
     Route: 037
  7. DOXORUBICIN [Suspect]
     Active Substance: DOXORUBICIN
     Indication: DIFFUSE LARGE B-CELL LYMPHOMA
     Dosage: UNK, EVERY 2 WEEKS FOR 2 COURCES
  8. DOXORUBICIN [Suspect]
     Active Substance: DOXORUBICIN
     Dosage: UNK, CYCLIC (FOUR COURSES)
  9. CYCLOPHOSPHAMIDE. [Suspect]
     Active Substance: CYCLOPHOSPHAMIDE
     Dosage: UNK, CYCLIC (FOUR COURSES)
  10. METHOTREXATE SODIUM. [Suspect]
     Active Substance: METHOTREXATE SODIUM
     Indication: DIFFUSE LARGE B-CELL LYMPHOMA
     Dosage: UNK, CYCLIC (HIGH DOSE, TWO COURSES)
  11. RITUXIMAB. [Suspect]
     Active Substance: RITUXIMAB
     Indication: DIFFUSE LARGE B-CELL LYMPHOMA
     Dosage: UNK, EVERY 2 WEEKS FOR 2 COURCES
  12. PREDNISONE. [Suspect]
     Active Substance: PREDNISONE
     Indication: DIFFUSE LARGE B-CELL LYMPHOMA
     Dosage: UNK, EVERY 2 WEEKS FOR 2 COURCES
  13. VINCRISTINE SULFATE. [Suspect]
     Active Substance: VINCRISTINE SULFATE
     Dosage: UNK, CYCLIC (FOUR COURSES)
  14. VINCRISTINE SULFATE. [Suspect]
     Active Substance: VINCRISTINE SULFATE
     Dosage: PREPHASE
  15. RITUXIMAB. [Suspect]
     Active Substance: RITUXIMAB
     Dosage: UNK, CYCLIC (1 COURSE OF HIGH-DOSE CYTARABINE WITH R)
  16. CYCLOPHOSPHAMIDE. [Suspect]
     Active Substance: CYCLOPHOSPHAMIDE
     Indication: DIFFUSE LARGE B-CELL LYMPHOMA
     Dosage: UNK, EVERY 2 WEEKS FOR 2 COURCES
  17. PREDNISONE. [Suspect]
     Active Substance: PREDNISONE
     Dosage: UNK, CYCLIC (FOUR COURSES)
  18. DEXAMETHASONE. [Suspect]
     Active Substance: DEXAMETHASONE
     Indication: DIFFUSE LARGE B-CELL LYMPHOMA
     Dosage: PREPHASE

REACTIONS (1)
  - Gastrointestinal haemorrhage [Fatal]
